FAERS Safety Report 6513046-4 (Version None)
Quarter: 2009Q4

REPORT INFORMATION
  Report Type: 
  Country: None (occurrence: None)
  Receive Date: 20091222
  Receipt Date: 20091222
  Transmission Date: 20100525
  Serious: Yes (Hospitalization)
  Sender: FDA-Public Use
  Company Number: None

PATIENT
  Age: 45 Year
  Sex: Female
  Weight: 105.7 kg

DRUGS (1)
  1. GLUCOPHAGE [Suspect]
     Dosage: 1000 MG BID PERIARTICULAR
     Route: 052
     Dates: start: 20060228, end: 20090728

REACTIONS (6)
  - BLOOD PRESSURE DIASTOLIC DECREASED [None]
  - BLOOD PRESSURE SYSTOLIC INCREASED [None]
  - DIZZINESS [None]
  - LACTIC ACIDOSIS [None]
  - PNEUMONIA [None]
  - URINARY TRACT INFECTION [None]
